FAERS Safety Report 8193321-0 (Version None)
Quarter: 2012Q1

REPORT INFORMATION
  Report Type: 
  Country: None (occurrence: None)
  Receive Date: 20120308
  Receipt Date: 20120305
  Transmission Date: 20120608
  Serious: Yes (Hospitalization, Other)
  Sender: FDA-Public Use
  Company Number: US-JNJFOC-20111001145

PATIENT
  Sex: Male
  Weight: 48.08 kg

DRUGS (19)
  1. ZYTIGA [Suspect]
     Indication: PROSTATE CANCER METASTATIC
     Route: 048
     Dates: start: 20110701, end: 20110701
  2. ZYTIGA [Suspect]
     Route: 048
     Dates: start: 20111001
  3. LASIX [Concomitant]
     Indication: FLUID RETENTION
     Route: 048
     Dates: start: 19910101
  4. SPIRONOLACTONE [Concomitant]
     Route: 048
     Dates: start: 19910101
  5. ZYTIGA [Suspect]
     Route: 048
     Dates: start: 20110901
  6. PREDNISONE TAB [Suspect]
     Route: 048
     Dates: start: 20110701
  7. LASIX [Concomitant]
     Route: 048
     Dates: start: 19910101
  8. TRAZODONE HCL [Concomitant]
     Indication: NERVOUSNESS
     Route: 065
  9. METOPROLOL SUCCINATE [Concomitant]
     Indication: BLOOD PRESSURE
     Route: 048
     Dates: start: 19810101
  10. PREDNISONE TAB [Suspect]
     Route: 048
     Dates: start: 20110801
  11. TOPROL-XL [Concomitant]
     Route: 048
     Dates: start: 19910101
  12. SPIRONOLACTONE [Concomitant]
     Indication: FLUID RETENTION
     Route: 048
     Dates: start: 20110730
  13. KETOCONAZOLE [Suspect]
     Indication: PRODUCT USED FOR UNKNOWN INDICATION
     Route: 065
     Dates: start: 20100101, end: 20110801
  14. PREDNISONE TAB [Suspect]
     Indication: PROSTATE CANCER METASTATIC
     Route: 048
     Dates: start: 20110701
  15. TOPROL-XL [Concomitant]
     Indication: BLOOD PRESSURE
     Route: 048
  16. LASIX [Concomitant]
     Route: 048
     Dates: start: 20110723
  17. ZYTIGA [Suspect]
     Route: 048
     Dates: start: 20110801, end: 20110901
  18. LASIX [Concomitant]
     Indication: OEDEMA
     Route: 048
     Dates: start: 20110723
  19. TRAZODONE HCL [Concomitant]
     Indication: FEELING JITTERY
     Route: 065

REACTIONS (33)
  - FEELING JITTERY [None]
  - PROSTATIC SPECIFIC ANTIGEN INCREASED [None]
  - FALL [None]
  - FEELING ABNORMAL [None]
  - DRUG INEFFECTIVE [None]
  - CARDIAC DISORDER [None]
  - BALANCE DISORDER [None]
  - CONVERSION DISORDER [None]
  - HAEMOGLOBIN DECREASED [None]
  - DRUG INTOLERANCE [None]
  - FLUID RETENTION [None]
  - WEIGHT INCREASED [None]
  - CERVICAL VERTEBRAL FRACTURE [None]
  - DIZZINESS [None]
  - NERVOUSNESS [None]
  - WEIGHT DECREASED [None]
  - SKIN ATROPHY [None]
  - ANXIETY [None]
  - DYSPHONIA [None]
  - RESTLESS LEGS SYNDROME [None]
  - SOMNOLENCE [None]
  - RASH [None]
  - CARDIAC FAILURE [None]
  - RENAL IMPAIRMENT [None]
  - MOBILITY DECREASED [None]
  - LABORATORY TEST ABNORMAL [None]
  - FEAR [None]
  - MUSCLE TWITCHING [None]
  - ASTHENIA [None]
  - HYPERSOMNIA [None]
  - DEPRESSED MOOD [None]
  - FATIGUE [None]
  - PRURITUS [None]
